FAERS Safety Report 10488759 (Version 1)
Quarter: 2014Q3

REPORT INFORMATION
  Report Type: Spontaneous
  Country: US (occurrence: None)
  Receive Date: 20140930
  Receipt Date: 20140930
  Transmission Date: 20150326
  Serious: Yes (Life-Threatening, Hospitalization)
  Sender: FDA-Public Use
  Company Number: 2014HINLIT0884

PATIENT
  Age: 62 Year
  Sex: Male

DRUGS (6)
  1. METOPROLOL [Concomitant]
     Active Substance: METOPROLOL
  2. SIMVASTATIN. [Concomitant]
     Active Substance: SIMVASTATIN
  3. LISINOPRIL. [Concomitant]
     Active Substance: LISINOPRIL
  4. ASPIRIN. [Concomitant]
     Active Substance: ASPIRIN
  5. CYCLOPHOSPHAMIDE. [Concomitant]
     Active Substance: CYCLOPHOSPHAMIDE
  6. HYDRALAZINE [Suspect]
     Active Substance: HYDRALAZINE HYDROCHLORIDE
     Indication: HYPERTENSION

REACTIONS (14)
  - Anti-neutrophil cytoplasmic antibody positive vasculitis [None]
  - Pulmonary haemorrhage [None]
  - Anaemia [None]
  - Blood potassium decreased [None]
  - Rectal polyp [None]
  - Platelet count increased [None]
  - Renal failure acute [None]
  - Diverticulum [None]
  - Kidney fibrosis [None]
  - Renal tubular atrophy [None]
  - Weight decreased [None]
  - Glomerulonephritis [None]
  - Pulmonary renal syndrome [None]
  - Haemorrhage [None]
